FAERS Safety Report 10678665 (Version 4)
Quarter: 2015Q1

REPORT INFORMATION
  Report Type: Spontaneous
  Country: US (occurrence: None)
  Receive Date: 20141223
  Receipt Date: 20150312
  Transmission Date: 20150720
  Serious: No
  Sender: FDA-Public Use
  Company Number: CC14-1797

PATIENT
  Sex: Female

DRUGS (2)
  1. 4 DIFFERENT BLOOD PRESSURE MEDICATIONS [Concomitant]
  2. DICLOFENAC SODIUM. [Suspect]
     Active Substance: DICLOFENAC SODIUM
     Indication: PRECANCEROUS CELLS PRESENT
     Dates: end: 2014

REACTIONS (8)
  - Clavicle fracture [None]
  - Migraine [None]
  - Disease recurrence [None]
  - Rib fracture [None]
  - Upper limb fracture [None]
  - Blood pressure increased [None]
  - Fall [None]
  - Arthralgia [None]
